FAERS Safety Report 16085464 (Version 3)
Quarter: 2020Q4

REPORT INFORMATION
  Report Type: Report from Study
  Country: None (occurrence: NL)
  Receive Date: 20190318
  Receipt Date: 20201013
  Transmission Date: 20210113
  Serious: Yes (Other)
  Sender: FDA-Public Use
  Company Number: NL-ABBVIE-19S-114-2706713-00

PATIENT
  Sex: Female

DRUGS (2)
  1. DUODOPA [Suspect]
     Active Substance: CARBIDOPA\LEVODOPA
     Indication: PARKINSON^S DISEASE
     Route: 050
     Dates: start: 20170424
  2. DUODOPA [Suspect]
     Active Substance: CARBIDOPA\LEVODOPA
     Dosage: MORNING DOSE 9.0 ML; CONTINUOUS DOSE 2.6 ML/HR; EXTRA DOSE 2.0ML
     Route: 050

REACTIONS (14)
  - General physical health deterioration [Unknown]
  - Osteoarthritis [Not Recovered/Not Resolved]
  - Device dislocation [Unknown]
  - Hip fracture [Recovered/Resolved]
  - Fall [Recovered/Resolved]
  - Weight decreased [Recovered/Resolved]
  - Freezing phenomenon [Not Recovered/Not Resolved]
  - Weight abnormal [Unknown]
  - Dyskinesia [Unknown]
  - Partner stress [Not Recovered/Not Resolved]
  - Stoma site discharge [Unknown]
  - Fibroma [Unknown]
  - Visual impairment [Unknown]
  - Hyperhidrosis [Unknown]

NARRATIVE: CASE EVENT DATE: 2019
